FAERS Safety Report 7830735-X (Version None)
Quarter: 2011Q4

REPORT INFORMATION
  Report Type: 
  Country: None (occurrence: None)
  Receive Date: 20111021
  Receipt Date: 20111018
  Transmission Date: 20120403
  Serious: Yes (Hospitalization)
  Sender: FDA-Public Use
  Company Number: SE-ABBOTT-11P-150-0866042-00

PATIENT
  Sex: Female

DRUGS (21)
  1. ALLOPURINOL [Concomitant]
     Indication: GOUT
  2. FUROSEMIDE [Concomitant]
     Indication: OEDEMA
  3. NOVORAPID [Concomitant]
     Indication: DIABETES MELLITUS
     Route: 058
     Dates: start: 20061205
  4. ALLOPURINOL [Concomitant]
     Indication: PROPHYLAXIS
     Route: 048
     Dates: start: 20061205
  5. EMGESAN [Concomitant]
     Indication: VASOSPASM
     Route: 048
     Dates: start: 20090811
  6. ZEMPLAR [Suspect]
     Indication: RENAL FAILURE CHRONIC
     Dosage: DAILY
     Route: 048
     Dates: start: 20110201
  7. FUROSEMIDE [Concomitant]
     Indication: DIURETIC THERAPY
     Route: 048
     Dates: start: 20110101
  8. PARAFLEX [Concomitant]
     Indication: HYPOTONIA
     Dosage: 1 IN 1 D, AS NEEDED
     Route: 048
  9. PARAFLEX [Concomitant]
     Indication: PAIN
  10. POTASSIUM CHLORIDE [Concomitant]
     Indication: BLOOD POTASSIUM DECREASED
     Route: 048
     Dates: start: 20081122
  11. SYMBICORT [Concomitant]
     Indication: BRONCHIAL OBSTRUCTION
     Route: 055
  12. OMEPRAZOLE [Concomitant]
     Indication: PROPHYLAXIS
  13. LAKTULOS [Concomitant]
     Indication: CONSTIPATION
     Route: 048
  14. CILAXORAL [Concomitant]
     Indication: CONSTIPATION
     Route: 048
  15. ACETAMINOPHEN W/ CODEINE [Concomitant]
     Indication: PAIN
     Dosage: 1 IN 1 D, AS NEEDED
     Route: 048
  16. INOLAXOL [Concomitant]
     Indication: CONSTIPATION
     Route: 048
  17. INSULATARD NPH HUMAN [Concomitant]
     Indication: DIABETES MELLITUS
     Dosage: 25 IE + 0 + 10 IE
     Route: 058
     Dates: start: 20061205
  18. OMEPRAZOLE [Concomitant]
     Indication: GASTRIC ULCER
     Route: 048
     Dates: start: 20110101
  19. SCHERIPROCT [Concomitant]
     Indication: HAEMORRHOIDS
  20. LIPITOR [Concomitant]
     Indication: HYPERCHOLESTEROLAEMIA
     Route: 048
     Dates: start: 20091217
  21. BRICANYL [Concomitant]
     Indication: BRONCHIAL OBSTRUCTION
     Route: 055

REACTIONS (1)
  - DIVERTICULITIS [None]
